FAERS Safety Report 6872509-2 (Version None)
Quarter: 2010Q3

REPORT INFORMATION
  Report Type: 
  Country: None (occurrence: None)
  Receive Date: 20100723
  Receipt Date: 20090105
  Transmission Date: 20110219
  Serious: No
  Sender: FDA-Public Use
  Company Number: US-PFIZER INC-2008080510

PATIENT
  Sex: Female
  Weight: 58.05 kg

DRUGS (2)
  1. CHANTIX [Suspect]
  2. VALTREX [Concomitant]
     Dosage: 1 G, UNK

REACTIONS (3)
  - ABNORMAL DREAMS [None]
  - DEPRESSED MOOD [None]
  - MOOD ALTERED [None]
